FAERS Safety Report 7238712-7 (Version None)
Quarter: 2011Q1

REPORT INFORMATION
  Report Type: 
  Country: None (occurrence: None)
  Receive Date: 20110121
  Receipt Date: 20110113
  Transmission Date: 20110831
  Serious: Yes (Death, Other)
  Sender: FDA-Public Use
  Company Number: JP-AMGEN-JPNCT2011003782

PATIENT

DRUGS (19)
  1. IRINOTECAN HYDROCHLORIDE [Suspect]
     Indication: COLORECTAL CANCER
     Route: 041
     Dates: start: 20101001, end: 20101016
  2. HIRUDOID LOTION [Concomitant]
     Dosage: UNK
     Route: 062
  3. TSUMURA DAIKENTYUTO [Concomitant]
     Dosage: UNK
     Route: 048
  4. PREDNISOLONE [Concomitant]
     Dosage: UNK
     Route: 048
  5. LANSOPRAZOLE [Concomitant]
     Dosage: UNK
     Route: 048
  6. LORFENAMIN [Concomitant]
     Dosage: UNK
     Route: 048
  7. ALDACTONE [Concomitant]
     Dosage: UNK
     Route: 048
  8. PANITUMUMAB [Suspect]
     Indication: COLORECTAL CANCER
     Dosage: 6 MG/KG, Q2WK
     Route: 041
     Dates: start: 20101010, end: 20101016
  9. LOCOID CREAM [Concomitant]
     Dosage: UNK
     Route: 062
  10. CALCIUM LEVOFOLINATE [Suspect]
     Indication: COLORECTAL CANCER
     Route: 041
     Dates: start: 20101001, end: 20101016
  11. METHYCOBAL [Concomitant]
     Dosage: UNK
     Route: 048
  12. OXYCONTIN [Concomitant]
     Dosage: UNK
     Route: 048
  13. MINOMYCIN [Concomitant]
     Dosage: UNK
     Route: 048
  14. KYTRIL [Concomitant]
     Dosage: UNK
     Route: 041
  15. FLUOROURACIL [Suspect]
     Indication: COLORECTAL CANCER
     Route: 041
     Dates: start: 20101001, end: 20101016
  16. SINSERON [Concomitant]
     Dosage: UNK
     Route: 048
  17. DECADRON [Concomitant]
     Dosage: UNK
     Route: 042
  18. JUVELA N [Concomitant]
     Dosage: UNK
     Route: 048
  19. LASIX [Concomitant]
     Dosage: UNK
     Route: 048

REACTIONS (5)
  - FEBRILE NEUTROPENIA [None]
  - STOMATITIS [None]
  - NAUSEA [None]
  - HOT FLUSH [None]
  - COLORECTAL CANCER [None]
